FAERS Safety Report 19060921 (Version 2)
Quarter: 2021Q2

REPORT INFORMATION
  Report Type: Report from Study
  Country: CN (occurrence: CN)
  Receive Date: 20210325
  Receipt Date: 20210415
  Transmission Date: 20210717
  Serious: Yes (Other)
  Sender: FDA-Public Use
  Company Number: CN-VIIV HEALTHCARE LIMITED-CN2021GSK069355

PATIENT
  Age: 36 Year
  Sex: Male

DRUGS (6)
  1. ENTECAVIR. [Suspect]
     Active Substance: ENTECAVIR
     Indication: CHRONIC HEPATITIS C
     Dosage: UNK
     Dates: start: 200905, end: 201012
  2. LAMIVUDINE. [Suspect]
     Active Substance: LAMIVUDINE
     Indication: CHRONIC HEPATITIS C
     Dosage: UNK
  3. ENTECAVIR. [Suspect]
     Active Substance: ENTECAVIR
     Dosage: UNK
     Dates: start: 201012, end: 201409
  4. ADEFOVIR DIPIVOXIL. [Suspect]
     Active Substance: ADEFOVIR DIPIVOXIL
     Dosage: UNK
     Dates: start: 201012, end: 201409
  5. TELBIVUDINE [Concomitant]
     Active Substance: TELBIVUDINE
     Indication: CHRONIC HEPATITIS C
     Dosage: UNK
     Dates: start: 200804, end: 200905
  6. ADEFOVIR DIPIVOXIL. [Suspect]
     Active Substance: ADEFOVIR DIPIVOXIL
     Indication: CHRONIC HEPATITIS C
     Dosage: UNK
     Dates: start: 200701, end: 200804

REACTIONS (4)
  - Therapeutic product effect incomplete [Unknown]
  - Multiple-drug resistance [Unknown]
  - Pathogen resistance [Unknown]
  - Viral mutation identified [Unknown]
